FAERS Safety Report 6759900-X (Version None)
Quarter: 2010Q2

REPORT INFORMATION
  Report Type: 
  Country: None (occurrence: None)
  Receive Date: 20100608
  Receipt Date: 20100528
  Transmission Date: 20101027
  Serious: Yes (Other)
  Sender: FDA-Public Use
  Company Number: NL-JNJFOC-20080305133

PATIENT
  Sex: Male
  Weight: 3.5 kg

DRUGS (6)
  1. REMICADE [Suspect]
     Indication: DRUG EXPOSURE DURING PREGNANCY
     Route: 050
  2. REMICADE [Suspect]
     Route: 050
  3. REMICADE [Suspect]
     Route: 050
  4. AZATHIOPRINE SODIUM [Concomitant]
  5. VITAMIN B-12 [Concomitant]
  6. VALACYCLOVIR [Concomitant]

REACTIONS (1)
  - PREMATURE BABY [None]
